FAERS Safety Report 5722693-9 (Version None)
Quarter: 2008Q2

REPORT INFORMATION
  Report Type: 
  Country: None (occurrence: None)
  Receive Date: 20080429
  Receipt Date: 20070716
  Transmission Date: 20081010
  Serious: No
  Sender: FDA-Public Use
  Company Number: US-ASTRAZENECA-2007UW16900

PATIENT
  Age: 80 Year
  Sex: Female
  Weight: 68 kg

DRUGS (2)
  1. NEXIUM [Suspect]
     Indication: GASTROOESOPHAGEAL REFLUX DISEASE
     Route: 048
     Dates: start: 20070301
  2. TRANQULIZER THYROID PILL [Concomitant]

REACTIONS (3)
  - CHOKING SENSATION [None]
  - HEADACHE [None]
  - PHARYNGOLARYNGEAL PAIN [None]
